FAERS Safety Report 5237441-9 (Version None)
Quarter: 2007Q1

REPORT INFORMATION
  Report Type: 
  Country: None (occurrence: None)
  Receive Date: 20070213
  Receipt Date: 20070202
  Transmission Date: 20070707
  Serious: Yes (Other)
  Sender: FDA-Public Use
  Company Number: GB-PFIZER INC-2007009843

PATIENT
  Age: 44 Year
  Sex: Female
  Weight: 56 kg

DRUGS (16)
  1. LYRICA [Suspect]
     Indication: NECK PAIN
     Route: 048
     Dates: start: 20050308, end: 20061115
  2. ADALAT CC [Concomitant]
  3. ALLOPURINOL SODIUM [Concomitant]
     Dates: start: 20050101
  4. ATENOLOL [Concomitant]
     Dates: start: 19980101
  5. ATORVASTATIN [Concomitant]
     Dates: start: 20000101
  6. CLOPIDOGREL [Concomitant]
     Dates: start: 20050101
  7. CO-DYDRAMOL [Concomitant]
     Dates: end: 20061115
  8. DIAZEPAM [Concomitant]
     Route: 048
  9. DOXAZOSIN MESYLATE [Concomitant]
     Dates: start: 20010101
  10. FRUSEMIDE [Concomitant]
     Dates: start: 19980101
  11. GLICLAZIDE [Concomitant]
     Dates: start: 20010101
  12. IRBESARTAN [Concomitant]
     Dates: start: 20040101
  13. OMEPRAZOLE [Concomitant]
     Dates: start: 20050101
  14. PERINDOPRIL ERBUMINE [Concomitant]
     Dates: start: 19980101
  15. RAMIPRIL [Concomitant]
     Dates: start: 20060901
  16. VENLAFAXINE HCL [Concomitant]

REACTIONS (5)
  - ANXIETY [None]
  - DRUG DEPENDENCE [None]
  - DRUG WITHDRAWAL SYNDROME [None]
  - HYPERHIDROSIS [None]
  - SLEEP DISORDER [None]
